FAERS Safety Report 9315263 (Version 1)
Quarter: 2013Q2

REPORT INFORMATION
  Report Type: Spontaneous
  Country: US (occurrence: US)
  Receive Date: 20130529
  Receipt Date: 20130529
  Transmission Date: 20140414
  Serious: Yes (Other)
  Sender: FDA-Public Use
  Company Number: US-TEVA-US013819

PATIENT
  Age: 16 Month
  Sex: Female

DRUGS (1)
  1. ACTIQ [Suspect]
     Dosage: 200 MICROGRAM DAILY;
     Route: 002
     Dates: start: 20040915, end: 20040915

REACTIONS (2)
  - Accidental exposure to product [Recovered/Resolved]
  - Somnolence [Recovered/Resolved]
